FAERS Safety Report 19743123 (Version 1)
Quarter: 2021Q3

REPORT INFORMATION
  Report Type: Spontaneous
  Country: US (occurrence: US)
  Receive Date: 20210825
  Receipt Date: 20210825
  Transmission Date: 20211014
  Serious: No
  Sender: FDA-Public Use
  Company Number: US-BAYER-2021-198911

PATIENT
  Age: 50 Year
  Sex: Female

DRUGS (1)
  1. CLARITIN [Suspect]
     Active Substance: LORATADINE
     Dosage: UNK
     Route: 065
     Dates: start: 20210820, end: 20210821

REACTIONS (2)
  - Nausea [Unknown]
  - Abdominal discomfort [None]

NARRATIVE: CASE EVENT DATE: 20210820
